FAERS Safety Report 14333708 (Version 1)
Quarter: 2017Q4

REPORT INFORMATION
  Report Type: Spontaneous
  Country: US (occurrence: US)
  Receive Date: 20171227
  Receipt Date: 20171227
  Transmission Date: 20180321
  Serious: Yes (Hospitalization, Other)
  Sender: FDA-Public Use
  Company Number: None

PATIENT
  Age: 4 Year
  Sex: Male
  Weight: 17.6 kg

DRUGS (11)
  1. EPIPEN [Concomitant]
     Active Substance: EPINEPHRINE
  2. LIDOCAINE-PRILOCAINE [Concomitant]
     Active Substance: LIDOCAINE\PRILOCAINE
  3. PREDNISOLONE. [Concomitant]
     Active Substance: PREDNISOLONE
  4. BACTRIM [Concomitant]
     Active Substance: SULFAMETHOXAZOLE\TRIMETHOPRIM
  5. MIRALAX [Concomitant]
     Active Substance: POLYETHYLENE GLYCOL 3350
  6. ARRANON [Suspect]
     Active Substance: NELARABINE
     Indication: T-CELL TYPE ACUTE LEUKAEMIA
     Route: 042
     Dates: start: 20171211, end: 20171215
  7. ACETAMINOPHEN. [Concomitant]
     Active Substance: ACETAMINOPHEN
  8. CHOLECALCIFEROL [Concomitant]
     Active Substance: CHOLECALCIFEROL
  9. DIPHENHYDRAMINE. [Concomitant]
     Active Substance: DIPHENHYDRAMINE
  10. ONDANSETRON [Concomitant]
     Active Substance: ONDANSETRON
  11. SENNA [Concomitant]
     Active Substance: SENNA LEAF\SENNOSIDES\SENNOSIDES A AND B

REACTIONS (17)
  - Condition aggravated [None]
  - Serum ferritin increased [None]
  - Histiocytosis haematophagic [None]
  - Blood albumin decreased [None]
  - Coagulation test abnormal [None]
  - Malnutrition [None]
  - Pleural effusion [None]
  - Cytopenia [None]
  - Dialysis [None]
  - Pneumonia [None]
  - Renal impairment [None]
  - Multiple organ dysfunction syndrome [None]
  - Hepatic function abnormal [None]
  - Platelet count abnormal [None]
  - Blood lactate dehydrogenase increased [None]
  - Coagulopathy [None]
  - Hepatosplenomegaly [None]

NARRATIVE: CASE EVENT DATE: 20171225
